FAERS Safety Report 4521125-6 (Version None)
Quarter: 2004Q4

REPORT INFORMATION
  Report Type: 
  Country: None (occurrence: None)
  Receive Date: 20041208
  Receipt Date: 20041129
  Transmission Date: 20050328
  Serious: Yes (Life-Threatening)
  Sender: FDA-Public Use
  Company Number: IT-ROCHE-387698

PATIENT
  Age: 33 Year
  Sex: Female

DRUGS (2)
  1. TORADIUR [Suspect]
     Dosage: PATIENT RECEIVED TORASEMIDE ONCE DAILY, FOR FOUR TO FIVE DAYS PER MONTH, DURING HER MENSTRUAL CYCLE
     Route: 048
     Dates: start: 20030901, end: 20040901
  2. TRIMINULET [Concomitant]
     Route: 048

REACTIONS (3)
  - ELECTROCARDIOGRAM QT PROLONGED [None]
  - HYPOKALAEMIA [None]
  - ORTHOSTATIC HYPOTENSION [None]
